FAERS Safety Report 11383470 (Version 2)
Quarter: 2015Q3

REPORT INFORMATION
  Report Type: Report from Study
  Country: CR (occurrence: CR)
  Receive Date: 20150814
  Receipt Date: 20150828
  Transmission Date: 20151125
  Serious: No
  Sender: FDA-Public Use
  Company Number: PHHY2015CR098536

PATIENT
  Age: 53 Year
  Sex: Female
  Weight: 58 kg

DRUGS (4)
  1. SANDOSTATIN LAR DEPOT [Suspect]
     Active Substance: OCTREOTIDE ACETATE
     Indication: GASTROINTESTINAL STROMAL TUMOUR
     Dosage: UNK UNK, QMO
     Route: 065
     Dates: start: 20150320
  2. CALCIUM [Concomitant]
     Active Substance: CALCIUM
     Indication: HYSTERECTOMY
     Route: 065
  3. VITAMIN D [Concomitant]
     Active Substance: CHOLECALCIFEROL
     Indication: HYSTERECTOMY
     Route: 065
  4. GRAVOL [Concomitant]
     Active Substance: DIMENHYDRINATE
     Indication: PRODUCT USED FOR UNKNOWN INDICATION
     Dosage: 1 DF (ONE TABLET), UNK
     Route: 048

REACTIONS (12)
  - Asthenia [Unknown]
  - Nausea [Recovered/Resolved]
  - Abdominal pain [Unknown]
  - Abdominal distension [Unknown]
  - Steatorrhoea [Unknown]
  - Fatigue [Unknown]
  - Concomitant disease aggravated [Unknown]
  - Decreased appetite [Unknown]
  - Weight decreased [Unknown]
  - Off label use [Unknown]
  - Ear pain [Unknown]
  - Dizziness [Unknown]
